FAERS Safety Report 9119832 (Version 2)
Quarter: 2013Q2

REPORT INFORMATION
  Report Type: Report from Study
  Country: CA (occurrence: CA)
  Receive Date: 20130226
  Receipt Date: 20130405
  Transmission Date: 20140414
  Serious: Yes (Other)
  Sender: FDA-Public Use
  Company Number: CA-JNJFOC-20130209028

PATIENT
  Age: 43 Year
  Sex: Female
  Weight: 71 kg

DRUGS (3)
  1. REMICADE [Suspect]
     Indication: RHEUMATOID ARTHRITIS
     Dosage: STARTED 5 YEARS AGO
     Route: 042
     Dates: start: 20040422
  2. METHOTREXATE [Concomitant]
     Route: 048
  3. FOLIC ACID [Concomitant]
     Route: 048

REACTIONS (2)
  - Colitis [Recovered/Resolved]
  - Nasopharyngitis [Unknown]
